FAERS Safety Report 14590327 (Version 1)
Quarter: 2018Q1

REPORT INFORMATION
  Report Type: Spontaneous
  Country: US (occurrence: US)
  Receive Date: 20180302
  Receipt Date: 20180302
  Transmission Date: 20180509
  Serious: No
  Sender: FDA-Public Use
  Company Number: US-PFIZER INC-2018085845

PATIENT
  Age: 55 Year
  Sex: Male

DRUGS (1)
  1. LYRICA [Suspect]
     Active Substance: PREGABALIN
     Dosage: 150 MG, UNK (150 MG CAPSULE / QTY 60 / DAY SUPPLY 30)

REACTIONS (3)
  - Localised infection [Unknown]
  - Pain [Unknown]
  - Diabetic neuropathy [Unknown]
